FAERS Safety Report 4282886-7 (Version None)
Quarter: 2004Q1

REPORT INFORMATION
  Report Type: 
  Country: None (occurrence: None)
  Receive Date: 20040130
  Receipt Date: 20030910
  Transmission Date: 20041129
  Serious: No
  Sender: FDA-Public Use
  Company Number: US-BRISTOL-MYERS SQUIBB COMPANY-12378915

PATIENT
  Age: 61 Year
  Sex: Male
  Weight: 111 kg

DRUGS (10)
  1. SERZONE [Suspect]
     Indication: DEPRESSION
     Dosage: START AT 50 MG BID FOR 5 DAYS THEN INCREASE TO 100 MG BID; UP TO 400 MG DAILY
     Route: 048
     Dates: start: 20010401, end: 20021001
  2. WARFARIN SODIUM [Concomitant]
     Indication: ATRIAL FIBRILLATION
     Dosage: 2.5 MG TABLET; 1 TABLET AT BEDTIME EXCEPT ON MON., WED., AND FRI. - ONLY 1/2 TABLET (1.25 MG)
     Route: 048
  3. ACETAMINOPHEN W/ CODEINE [Concomitant]
     Indication: PAIN
     Dosage: AS NECESSARY
     Route: 048
  4. ATENOLOL [Concomitant]
     Indication: BLOOD PRESSURE
     Dosage: 25 MG TABLET, ONE-HALF TABLET EVERY DAY
     Route: 048
  5. LANOXIN [Concomitant]
     Indication: CARDIAC DISORDER
     Route: 048
  6. FUROSEMIDE [Concomitant]
     Route: 048
  7. PRINIVIL [Concomitant]
     Indication: CARDIAC DISORDER
     Dosage: EVERY MORNING
     Route: 048
  8. PRINIVIL [Concomitant]
     Indication: BLOOD PRESSURE
     Dosage: EVERY MORNING
     Route: 048
  9. LORAZEPAM [Concomitant]
     Route: 048
     Dates: end: 20021101
  10. HYTRIN [Concomitant]
     Indication: PROSTATIC DISORDER
     Dosage: AT BEDTIME
     Route: 048

REACTIONS (2)
  - ERECTION INCREASED [None]
  - HYPOAESTHESIA [None]
